FAERS Safety Report 9126975 (Version 1)
Quarter: 2013Q1

REPORT INFORMATION
  Report Type: Spontaneous
  Country: AR (occurrence: AR)
  Receive Date: 20130228
  Receipt Date: 20130228
  Transmission Date: 20140127
  Serious: Yes (Other)
  Sender: FDA-Public Use
  Company Number: PHHY2013AR019317

PATIENT
  Age: 85 Year
  Sex: Male

DRUGS (4)
  1. EXELON [Suspect]
     Indication: COGNITIVE DISORDER
     Dosage: 9.5 MG (PATCH 10CM2), DAILY
     Route: 062
  2. EXELON [Suspect]
     Dosage: 4.6 MG (PATCH 5CM2), DAILY
     Route: 062
  3. EXELON [Suspect]
     Dosage: 9.5 MG (PATCH 10CM2), DAILY
     Route: 062
  4. ANTIBIOTICS [Concomitant]
     Indication: UPPER LIMB FRACTURE
     Dosage: UNK UKN, UNK
     Dates: start: 20130222, end: 20130225

REACTIONS (5)
  - Upper limb fracture [Recovering/Resolving]
  - Fall [Recovering/Resolving]
  - Nausea [Recovered/Resolved]
  - Cognitive disorder [Not Recovered/Not Resolved]
  - Parkinson^s disease [Unknown]
